FAERS Safety Report 17819911 (Version 1)
Quarter: 2020Q2

REPORT INFORMATION
  Report Type: Spontaneous
  Country: CA (occurrence: CA)
  Receive Date: 20200524
  Receipt Date: 20200524
  Transmission Date: 20200714
  Serious: Yes (Death, Other)
  Sender: FDA-Public Use
  Company Number: CA-BAXTER-2020BAX010745

PATIENT

DRUGS (1)
  1. 0.45% SODIUM CHLORIDE INJECTION [Suspect]
     Active Substance: SODIUM CHLORIDE
     Indication: END STAGE RENAL DISEASE
     Dosage: DOSAGE FORM: SOLUTION INTRAVENOUS
     Route: 042

REACTIONS (1)
  - Sepsis [Fatal]
